FAERS Safety Report 4491831-0 (Version None)
Quarter: 2004Q4

REPORT INFORMATION
  Report Type: 
  Country: None (occurrence: None)
  Receive Date: 20041028
  Receipt Date: 20041028
  Transmission Date: 20050328
  Serious: Yes (Life-Threatening, Hospitalization)
  Sender: FDA-Public Use
  Company Number: None

PATIENT
  Sex: Female

DRUGS (5)
  1. FERRLECIT [Suspect]
     Indication: ANAEMIA
     Dosage: 250MG QD X 4 DAYS  INTRAVENOU
     Route: 042
     Dates: start: 20040830, end: 20040830
  2. . [Concomitant]
  3. LEVAQUIN [Concomitant]
  4. DILAUDID [Concomitant]
  5. FLAGYL [Concomitant]

REACTIONS (4)
  - CONVULSION [None]
  - ELECTROMECHANICAL DISSOCIATION [None]
  - HYPERSENSITIVITY [None]
  - RESPIRATORY ARREST [None]
